FAERS Safety Report 8738964 (Version 2)
Quarter: 2012Q4

REPORT INFORMATION
  Report Type: 
  Country: JP (occurrence: JP)
  Receive Date: 20120823
  Receipt Date: 20121007
  Transmission Date: 20130627
  Serious: Yes (Death)
  Sender: FDA-Public Use
  Company Number: PHHY2012JP044321

PATIENT
  Age: 89 Year
  Sex: Female

DRUGS (5)
  1. EXJADE [Suspect]
     Indication: IRON OVERLOAD
     Dosage: 625 mg, Daily
     Route: 048
     Dates: start: 20120518, end: 20120523
  2. EXJADE [Suspect]
     Dosage: 625 mg, Daily
     Route: 048
     Dates: start: 20120525, end: 20120704
  3. DESFERAL [Suspect]
     Indication: IRON OVERLOAD
     Dosage: 1000 mg, UNK
     Route: 042
     Dates: start: 20120705, end: 201207
  4. PREDNISOLONE [Concomitant]
     Dosage: 10 mg, UNK
     Route: 048
  5. ONEALFA [Concomitant]
     Dosage: 0.5 mg, UNK
     Route: 048

REACTIONS (5)
  - Sepsis [Fatal]
  - Drug administration error [Not Recovered/Not Resolved]
  - Decreased appetite [Unknown]
  - Platelet count decreased [Recovered/Resolved]
  - Drug effect incomplete [Unknown]
